FAERS Safety Report 7762717-0 (Version None)
Quarter: 2011Q3

REPORT INFORMATION
  Report Type: 
  Country: None (occurrence: None)
  Receive Date: 20110920
  Receipt Date: 20110915
  Transmission Date: 20111222
  Serious: Yes (Life-Threatening)
  Sender: FDA-Public Use
  Company Number: GB-PFIZER INC-2011219345

PATIENT
  Age: 7 Day
  Sex: Female
  Weight: 1.42 kg

DRUGS (8)
  1. BENZYLPENICILLIN [Concomitant]
  2. NITRIC OXIDE [Concomitant]
     Route: 055
  3. VANCOMYCIN [Concomitant]
  4. VECURONIUM BROMIDE [Concomitant]
  5. CEFOTAXIME [Concomitant]
  6. CEFTAZIDIME [Concomitant]
  7. MORPHINE [Concomitant]
  8. FLUCONAZOLE [Suspect]
     Dosage: UNK
     Route: 042
     Dates: start: 20110903, end: 20110903

REACTIONS (4)
  - POOR PERIPHERAL CIRCULATION [None]
  - HYPOTENSION [None]
  - LIVEDO RETICULARIS [None]
  - PALLOR [None]
